FAERS Safety Report 7012532-0 (Version None)
Quarter: 2010Q3

REPORT INFORMATION
  Report Type: 
  Country: None (occurrence: None)
  Receive Date: 20100913
  Receipt Date: 20100415
  Transmission Date: 20110219
  Serious: Yes (Other)
  Sender: FDA-Public Use
  Company Number: 2010SP022227

PATIENT
  Age: 17 Year
  Sex: Female
  Weight: 81.6475 kg

DRUGS (3)
  1. IMPLANON [Suspect]
     Indication: CONTRACEPTION
     Dosage: 1 DF; PRESENT
     Dates: start: 20091104
  2. TYLENOL (CON.) [Concomitant]
  3. IBUPROFEN (CON.) [Concomitant]

REACTIONS (2)
  - MIGRAINE [None]
  - THROMBOSIS [None]
